FAERS Safety Report 24590364 (Version 1)
Quarter: 2024Q4

REPORT INFORMATION
  Report Type: Spontaneous
  Country: US (occurrence: US)
  Receive Date: 20241107
  Receipt Date: 20241107
  Transmission Date: 20250115
  Serious: Yes (Hospitalization, Other)
  Sender: BRISTOL-MYERS SQUIBB COMPANY
  Company Number: US-BRISTOL-MYERS SQUIBB COMPANY-2024-172943

PATIENT
  Age: 79 Year
  Sex: Female

DRUGS (4)
  1. ELIQUIS [Suspect]
     Active Substance: APIXABAN
     Indication: Atrial fibrillation
     Route: 048
     Dates: start: 2021
  2. ELIQUIS [Suspect]
     Active Substance: APIXABAN
     Route: 048
  3. AMIODARONE [Concomitant]
     Active Substance: AMIODARONE
     Indication: Product used for unknown indication
  4. ASPIRIN [Concomitant]
     Active Substance: ASPIRIN
     Indication: Product used for unknown indication

REACTIONS (14)
  - Rash macular [Unknown]
  - Alopecia [Unknown]
  - Contusion [Unknown]
  - Cardiac disorder [Unknown]
  - Somnolence [Unknown]
  - Herpes zoster [Unknown]
  - Fall [Unknown]
  - COVID-19 [Recovered/Resolved]
  - Loss of consciousness [Unknown]
  - Upper limb fracture [Unknown]
  - Off label use [Unknown]
  - Vocal cord disorder [Unknown]
  - Temporomandibular pain and dysfunction syndrome [Unknown]
  - Neoplasm malignant [Unknown]

NARRATIVE: CASE EVENT DATE: 20231001
